FAERS Safety Report 18769131 (Version 4)
Quarter: 2021Q4

REPORT INFORMATION
  Report Type: Report from Study
  Country: US (occurrence: US)
  Receive Date: 20210121
  Receipt Date: 20211016
  Transmission Date: 20220303
  Serious: Yes (Other)
  Sender: FDA-Public Use
  Company Number: NVSC2021US007656

PATIENT
  Age: 67 Year
  Sex: Male

DRUGS (1)
  1. ENTRESTO [Suspect]
     Active Substance: SACUBITRIL\VALSARTAN
     Indication: Cardiac failure
     Dosage: UNK
     Route: 065

REACTIONS (12)
  - Myocardial infarction [Unknown]
  - Angina pectoris [Unknown]
  - Chest pain [Not Recovered/Not Resolved]
  - Chest discomfort [Not Recovered/Not Resolved]
  - Dyspnoea [Not Recovered/Not Resolved]
  - Hypoacusis [Unknown]
  - Hyperhidrosis [Unknown]
  - Gingival disorder [Unknown]
  - Insomnia [Unknown]
  - Discomfort [Unknown]
  - Ejection fraction decreased [Unknown]
  - Product dose omission issue [Unknown]
